FAERS Safety Report 5656048-2 (Version None)
Quarter: 2008Q1

REPORT INFORMATION
  Report Type: 
  Country: None (occurrence: None)
  Receive Date: 20080307
  Receipt Date: 20080229
  Transmission Date: 20080703
  Serious: Yes (Hospitalization, Other)
  Sender: FDA-Public Use
  Company Number: US-PFIZER INC-2008019389

PATIENT
  Sex: Female
  Weight: 79.8 kg

DRUGS (3)
  1. LIPITOR [Suspect]
     Indication: BLOOD CHOLESTEROL INCREASED
     Dates: start: 20070501, end: 20070501
  2. PROPRANOLOL [Concomitant]
  3. PANTOPRAZOLE [Concomitant]

REACTIONS (6)
  - ALOPECIA [None]
  - HALLUCINATION [None]
  - HYPERTENSION [None]
  - PALPITATIONS [None]
  - SWELLING [None]
  - THROAT TIGHTNESS [None]
